FAERS Safety Report 11086255 (Version 4)
Quarter: 2015Q2

REPORT INFORMATION
  Report Type: Spontaneous
  Country: ES (occurrence: ES)
  Receive Date: 20150503
  Receipt Date: 20150622
  Transmission Date: 20150821
  Serious: Yes (Hospitalization, Other)
  Sender: FDA-Public Use
  Company Number: ES-AMGEN-ESPSP2015041277

PATIENT
  Age: 25 Year
  Sex: Female
  Weight: 58 kg

DRUGS (2)
  1. ZOELY [Concomitant]
     Active Substance: ESTRADIOL\NOMEGESTROL ACETATE
     Indication: PROPHYLAXIS
     Dosage: 1 DF, 1X/DAY (EVERY 24 HOURS, SHE WAS RESTING ONE WEEK A MONTH)
  2. ENBREL [Suspect]
     Active Substance: ETANERCEPT
     Indication: PSORIASIS
     Dosage: 50 MG, 2X/WEEK
     Route: 058
     Dates: start: 20140205

REACTIONS (1)
  - Peripheral nervous system neoplasm [Recovering/Resolving]

NARRATIVE: CASE EVENT DATE: 2014
